FAERS Safety Report 21215217 (Version 1)
Quarter: 2022Q3

REPORT INFORMATION
  Report Type: Spontaneous
  Country: CN (occurrence: CN)
  Receive Date: 20220816
  Receipt Date: 20220816
  Transmission Date: 20221027
  Serious: Yes (Other)
  Sender: FDA-Public Use
  Company Number: CN-PFIZER INC-PV202200037786

PATIENT
  Age: 62 Year
  Sex: Male

DRUGS (12)
  1. METHYLPREDNISOLONE [Suspect]
     Active Substance: METHYLPREDNISOLONE
     Indication: Pemphigoid
     Dosage: 20 MG, 1X/DAY
     Route: 048
  2. METHYLPREDNISOLONE [Suspect]
     Active Substance: METHYLPREDNISOLONE
     Dosage: 8 MG, 1X/DAY
     Route: 048
  3. METHOTREXATE SODIUM [Suspect]
     Active Substance: METHOTREXATE SODIUM
     Indication: Pemphigoid
     Dosage: 10 MG, WEEKLY
  4. METHOTREXATE SODIUM [Suspect]
     Active Substance: METHOTREXATE SODIUM
     Dosage: 12.5 MG, WEEKLY
  5. METHOTREXATE SODIUM [Suspect]
     Active Substance: METHOTREXATE SODIUM
     Dosage: 7.5 MG, WEEKLY
  6. VALSARTAN [Concomitant]
     Active Substance: VALSARTAN
     Indication: Hypertension
     Dosage: 80 MG, 1X/DAY
     Route: 048
  7. INSULIN GLARGINE RECOMBINANT [Concomitant]
     Active Substance: INSULIN GLARGINE
     Indication: Diabetes mellitus
     Dosage: 30 U IN THE MORNING AND 28 U IN THE EVENING
     Route: 058
  8. ACARBOSE [Concomitant]
     Active Substance: ACARBOSE
     Indication: Blood glucose abnormal
     Dosage: 100 MG, 3X/DAY
     Route: 048
  9. ROSUVASTATIN CALCIUM [Concomitant]
     Active Substance: ROSUVASTATIN CALCIUM
     Indication: Hyperlipidaemia
     Dosage: 10 MG, ONCE A NIGHT
     Route: 048
  10. MINOCYCLINE [Concomitant]
     Active Substance: MINOCYCLINE HYDROCHLORIDE
     Dosage: UNK
  11. NICOTINAMIDE [Concomitant]
     Active Substance: NIACINAMIDE
     Dosage: UNK
  12. IMMUNOGLOBULINS [Concomitant]
     Dosage: 25 G, 1X/DAY (FOR 5 DAYS)
     Route: 042

REACTIONS (5)
  - Osteoporosis [Unknown]
  - Hypoproteinaemia [Unknown]
  - Cardiovascular disorder [Unknown]
  - Endocrine disorder [Unknown]
  - Respiratory disorder [Unknown]
